FAERS Safety Report 6217796-9 (Version None)
Quarter: 2009Q2

REPORT INFORMATION
  Report Type: 
  Country: None (occurrence: None)
  Receive Date: 20090604
  Receipt Date: 20090604
  Transmission Date: 20091009
  Serious: Yes (Life-Threatening)
  Sender: FDA-Public Use
  Company Number: None

PATIENT
  Sex: Female
  Weight: 70.3075 kg

DRUGS (2)
  1. ACTONEL [Suspect]
     Indication: OSTEOPOROSIS
     Dosage: 35 MG WEEKLY PO
     Route: 048
     Dates: start: 20061017, end: 20090531
  2. ACTONEL [Suspect]
     Indication: RHEUMATOID ARTHRITIS
     Dosage: 35 MG WEEKLY PO
     Route: 048
     Dates: start: 20061017, end: 20090531

REACTIONS (2)
  - CHOKING [None]
  - DYSPHAGIA [None]
